FAERS Safety Report 17441413 (Version 1)
Quarter: 2020Q1

REPORT INFORMATION
  Report Type: Spontaneous
  Country: JP (occurrence: JP)
  Receive Date: 20200220
  Receipt Date: 20200220
  Transmission Date: 20200409
  Serious: Yes (Hospitalization)
  Sender: FDA-Public Use
  Company Number: JP-MEITHEAL PHARMACEUTICALS-2020MHL00004

PATIENT
  Age: 67 Year
  Sex: Female

DRUGS (2)
  1. PACLITAXEL. [Suspect]
     Active Substance: PACLITAXEL
     Indication: ENDOMETRIAL CANCER METASTATIC
     Route: 065
  2. CARBOPLATIN. [Suspect]
     Active Substance: CARBOPLATIN
     Indication: ENDOMETRIAL CANCER METASTATIC
     Route: 065

REACTIONS (5)
  - Electrolyte imbalance [Unknown]
  - Loss of consciousness [Unknown]
  - Torsade de pointes [Unknown]
  - Acute kidney injury [Unknown]
  - Long QT syndrome [Unknown]
